FAERS Safety Report 19178861 (Version 1)
Quarter: 2021Q2

REPORT INFORMATION
  Report Type: Spontaneous
  Country: US (occurrence: US)
  Receive Date: 20210421
  Receipt Date: 20210421
  Transmission Date: 20210717
  Serious: Yes (Disabling)
  Sender: FDA-Public Use
  Company Number: None

PATIENT
  Age: 64 Year
  Sex: Female
  Weight: 97.65 kg

DRUGS (11)
  1. ATORVASTATIN 80 MG TABLET (GENERIC FOR LIPITOR) [Suspect]
     Active Substance: ATORVASTATIN CALCIUM
     Indication: HYPERCHOLESTEROLAEMIA
     Route: 048
     Dates: start: 20141015, end: 20200831
  2. METOPROLOL. [Concomitant]
     Active Substance: METOPROLOL
  3. METFORMIN [Concomitant]
     Active Substance: METFORMIN HYDROCHLORIDE
  4. COENZYME Q10 [Concomitant]
     Active Substance: DIETARY SUPPLEMENT\UBIDECARENONE
  5. TRIAMTERENE. [Concomitant]
     Active Substance: TRIAMTERENE
  6. ASPIRIN 81MG [Concomitant]
     Active Substance: ASPIRIN
  7. ONE A DAY DAILY VITAMIN FOR WOMEN [Concomitant]
  8. LEVOTHYROXINE. [Concomitant]
     Active Substance: LEVOTHYROXINE
  9. LOSARTIN [Concomitant]
     Active Substance: LOSARTAN
  10. METHOTREXATE. [Concomitant]
     Active Substance: METHOTREXATE
  11. REPATHA [Concomitant]
     Active Substance: EVOLOCUMAB

REACTIONS (4)
  - Asthenia [None]
  - Immune-mediated myositis [None]
  - Myopathy [None]
  - Influenza [None]

NARRATIVE: CASE EVENT DATE: 20200229
